FAERS Safety Report 25549792 (Version 2)
Quarter: 2025Q3

REPORT INFORMATION
  Report Type: Spontaneous
  Country: US (occurrence: US)
  Receive Date: 20250714
  Receipt Date: 20250808
  Transmission Date: 20251021
  Serious: Yes (Other)
  Sender: UCB
  Company Number: US-UCBSA-2025042633

PATIENT
  Sex: Female
  Weight: 72.58 kg

DRUGS (12)
  1. ZILBRYSQ [Suspect]
     Active Substance: ZILUCOPLAN
     Indication: Myasthenia gravis
     Dosage: 23 MILLIGRAM, ONCE DAILY (QD)
     Route: 058
  2. VITAMIN C [Concomitant]
     Active Substance: ASCORBIC ACID
     Indication: Product used for unknown indication
  3. ERGOCALCIFEROL [Concomitant]
     Active Substance: ERGOCALCIFEROL
     Indication: Product used for unknown indication
  4. VITAMIN B12 [Concomitant]
     Active Substance: CYANOCOBALAMIN
     Indication: Product used for unknown indication
  5. ZINC [Concomitant]
     Active Substance: ZINC
     Indication: Product used for unknown indication
  6. LYSINE [Concomitant]
     Active Substance: LYSINE
     Indication: Product used for unknown indication
  7. PROBIOTICS [PROBIOTICS NOS] [Concomitant]
     Indication: Product used for unknown indication
  8. HERBALS\MELISSA OFFICINALIS [Concomitant]
     Active Substance: HERBALS\MELISSA OFFICINALIS
     Indication: Product used for unknown indication
  9. PREDNISONE [Concomitant]
     Active Substance: PREDNISONE
     Indication: Product used for unknown indication
  10. MESTINON [Concomitant]
     Active Substance: PYRIDOSTIGMINE BROMIDE
     Indication: Product used for unknown indication
  11. VYVGART [Concomitant]
     Active Substance: EFGARTIGIMOD ALFA-FCAB
     Indication: Product used for unknown indication
  12. CYANOCOBALAMIN [Concomitant]
     Active Substance: CYANOCOBALAMIN
     Indication: Product used for unknown indication

REACTIONS (4)
  - Myasthenia gravis [Not Recovered/Not Resolved]
  - Depression [Not Recovered/Not Resolved]
  - Quality of life decreased [Not Recovered/Not Resolved]
  - Drug ineffective [Unknown]
